FAERS Safety Report 6150309-9 (Version None)
Quarter: 2009Q2

REPORT INFORMATION
  Report Type: 
  Country: None (occurrence: None)
  Receive Date: 20090409
  Receipt Date: 20090402
  Transmission Date: 20091009
  Serious: Yes (Life-Threatening, Hospitalization, Other)
  Sender: FDA-Public Use
  Company Number: US-ABBOTT-09P-163-0566015-00

PATIENT
  Sex: Male
  Weight: 55.842 kg

DRUGS (2)
  1. KALETRA [Suspect]
     Indication: ACQUIRED IMMUNODEFICIENCY SYNDROME
     Dosage: 2 YELLOW PILLS INTHE MORNING AND 2 YELLOW PILL'S IN THE EVENING.
     Dates: start: 20090301
  2. TRUVADA [Concomitant]
     Indication: ACQUIRED IMMUNODEFICIENCY SYNDROME
     Dosage: NOT REPORTED

REACTIONS (6)
  - ACQUIRED IMMUNODEFICIENCY SYNDROME [None]
  - AORTIC ANEURYSM [None]
  - MYOCARDIAL INFARCTION [None]
  - PERIPHERAL EMBOLISM [None]
  - RENAL FAILURE [None]
  - VASCULAR OCCLUSION [None]
